FAERS Safety Report 15482153 (Version 3)
Quarter: 2019Q1

REPORT INFORMATION
  Report Type: Report from Study
  Country: ZA (occurrence: ZA)
  Receive Date: 20181010
  Receipt Date: 20190307
  Transmission Date: 20190417
  Serious: Yes (Other)
  Sender: FDA-Public Use
  Company Number: ZA-REGENERON PHARMACEUTICALS, INC.-2018-39974

PATIENT

DRUGS (1)
  1. EYLEA [Suspect]
     Active Substance: AFLIBERCEPT
     Indication: MACULAR DEGENERATION
     Dosage: 1 DF, UNK
     Route: 031
     Dates: start: 20180618

REACTIONS (4)
  - Eye infection [Recovered/Resolved]
  - Inappropriate schedule of product administration [Unknown]
  - Confusional state [Unknown]
  - Back pain [Unknown]

NARRATIVE: CASE EVENT DATE: 2018
